FAERS Safety Report 4648626-4 (Version None)
Quarter: 2005Q2

REPORT INFORMATION
  Report Type: 
  Country: None (occurrence: None)
  Receive Date: 20050429
  Receipt Date: 20040415
  Transmission Date: 20051028
  Serious: No
  Sender: FDA-Public Use
  Company Number: US-GLAXOSMITHKLINE-A0507276A

PATIENT
  Sex: Male

DRUGS (2)
  1. AMERGE [Suspect]
     Indication: CLUSTER HEADACHE
     Route: 048
  2. IMITREX [Concomitant]

REACTIONS (1)
  - THERAPEUTIC RESPONSE DECREASED [None]
